FAERS Safety Report 6045018-0 (Version None)
Quarter: 2009Q1

REPORT INFORMATION
  Report Type: 
  Country: None (occurrence: None)
  Receive Date: 20090121
  Receipt Date: 20090115
  Transmission Date: 20090719
  Serious: Yes (Death)
  Sender: FDA-Public Use
  Company Number: US-BRISTOL-MYERS SQUIBB COMPANY-14472716

PATIENT
  Age: 37 Year
  Sex: Female

DRUGS (8)
  1. METFORMIN HCL [Suspect]
     Route: 048
  2. ACETAMINOPHEN AND HYDROCODONE BITARTRATE [Suspect]
     Route: 048
  3. VENLAFAXINE HCL [Suspect]
     Route: 048
  4. DIAZEPAM [Suspect]
     Route: 048
  5. GLIPIZIDE [Suspect]
     Route: 048
  6. GABAPENTIN [Suspect]
     Route: 048
  7. RAMIPRIL [Suspect]
     Route: 048
  8. ANTIHISTAMINE COMBINATION [Suspect]
     Route: 048

REACTIONS (1)
  - COMPLETED SUICIDE [None]
